FAERS Safety Report 9230797 (Version 1)
Quarter: 2013Q2

REPORT INFORMATION
  Report Type: Spontaneous
  Country: BR (occurrence: BR)
  Receive Date: 20130415
  Receipt Date: 20130415
  Transmission Date: 20140414
  Serious: Yes (Congenital Anomaly)
  Sender: FDA-Public Use
  Company Number: BR-ASTRAZENECA-2013SE22455

PATIENT
  Age: 0 Year
  Sex: Male
  Weight: 3.3 kg

DRUGS (1)
  1. ZOLADEX LA [Suspect]
     Indication: ENDOMETRIOSIS
     Route: 064
     Dates: start: 20120531, end: 201209

REACTIONS (2)
  - Phenylalanine screen positive [Unknown]
  - Inborn error of metabolism [Unknown]
